FAERS Safety Report 8371269-6 (Version None)
Quarter: 2012Q1

REPORT INFORMATION
  Report Type: 
  Country: None (occurrence: None)
  Receive Date: 20120323
  Receipt Date: 20110815
  Transmission Date: 20120608
  Serious: Yes (Disabling)
  Sender: FDA-Public Use
  Company Number: 163-21880-10111750

PATIENT
  Age: 65 Year
  Sex: Male

DRUGS (1)
  1. REVLIMID [Suspect]
     Indication: MULTIPLE MYELOMA
     Dosage: 25 MG, DAIY X 3 WEEKS, PO
     Route: 048
     Dates: start: 20091228, end: 20101226

REACTIONS (4)
  - HYPERSENSITIVITY [None]
  - SWELLING [None]
  - PRURITUS [None]
  - RASH [None]
